FAERS Safety Report 25182373 (Version 3)
Quarter: 2025Q3

REPORT INFORMATION
  Report Type: Report from Study
  Country: US (occurrence: US)
  Receive Date: 20250410
  Receipt Date: 20250828
  Transmission Date: 20251021
  Serious: No
  Sender: SUNOVION
  Company Number: US-SUMITOMO PHARMA SWITZERLAND GMBH-2025SPA003198

PATIENT
  Age: 66 Year
  Sex: Male

DRUGS (3)
  1. ORGOVYX [Suspect]
     Active Substance: RELUGOLIX
     Indication: Prostate cancer
     Dosage: 120 MG, QD
     Route: 048
     Dates: start: 202411
  2. CIALIS [Concomitant]
     Active Substance: TADALAFIL
  3. TAMSULOSIN HYDROCHLORIDE [Concomitant]
     Active Substance: TAMSULOSIN HYDROCHLORIDE

REACTIONS (11)
  - Muscle atrophy [Unknown]
  - Penis disorder [Unknown]
  - Thinking abnormal [Unknown]
  - Crying [Unknown]
  - Quality of life decreased [Unknown]
  - Cold sweat [Unknown]
  - Fatigue [Unknown]
  - Hot flush [Unknown]
  - Loss of libido [Unknown]
  - Product dose omission issue [Recovered/Resolved]
  - Incorrect dose administered [Recovered/Resolved]
